FAERS Safety Report 8363044-3 (Version None)
Quarter: 2012Q2

REPORT INFORMATION
  Report Type: 
  Country: None (occurrence: None)
  Receive Date: 20120516
  Receipt Date: 20120509
  Transmission Date: 20120825
  Serious: Yes (Other)
  Sender: FDA-Public Use
  Company Number: JP-ASTELLAS-2012JP004103

PATIENT
  Age: 63 Year
  Sex: Male
  Weight: 67 kg

DRUGS (31)
  1. TACROLIMUS [Suspect]
     Dosage: 4 MG, BID
     Route: 048
     Dates: start: 20110715, end: 20110716
  2. PENTASA [Concomitant]
     Dosage: 4000 MG, UNKNOWN/D
     Route: 048
     Dates: start: 20110623
  3. PREDNISOLONE [Concomitant]
     Indication: COLITIS ULCERATIVE
     Dosage: 40 MG, UNKNOWN/D
     Route: 048
     Dates: start: 20110512, end: 20110525
  4. PREDNISOLONE [Concomitant]
     Dosage: 25 MG, UNKNOWN/D
     Route: 048
     Dates: start: 20110609, end: 20110622
  5. PREDNISOLONE [Concomitant]
     Dosage: 5 MG, UNKNOWN/D
     Route: 048
     Dates: start: 20111220, end: 20120106
  6. PENTASA [Concomitant]
     Dosage: 1000 MG, UNKNOWN/D
     Route: 054
     Dates: start: 20110519, end: 20110629
  7. PREDNISOLONE [Concomitant]
     Dosage: 25 MG, UNKNOWN/D
     Route: 048
     Dates: start: 20110804, end: 20110810
  8. PREDNISOLONE [Concomitant]
     Dosage: 20 MG, UNKNOWN/D
     Route: 048
     Dates: start: 20110811, end: 20111031
  9. TACROLIMUS [Suspect]
     Dosage: 8 MG, UNKNOWN/D
     Route: 048
     Dates: start: 20110722, end: 20110725
  10. PREDNISOLONE [Concomitant]
     Dosage: 50 MG, UNKNOWN/D
     Route: 065
     Dates: start: 20110706, end: 20110710
  11. TACROLIMUS [Suspect]
     Indication: COLITIS ULCERATIVE
     Dosage: 2.5 MG, BID
     Route: 048
     Dates: start: 20110713, end: 20110715
  12. TACROLIMUS [Suspect]
     Dosage: 7 MG, UNKNOWN/D
     Route: 048
     Dates: start: 20110719, end: 20110722
  13. TACROLIMUS [Suspect]
     Dosage: 7 MG, BID
     Route: 048
     Dates: start: 20110730, end: 20110731
  14. TACROLIMUS [Suspect]
     Dosage: 5 MG, BID
     Route: 048
     Dates: start: 20110803, end: 20120302
  15. PREDNISOLONE [Concomitant]
     Dosage: 40 MG, UNKNOWN/D
     Route: 048
     Dates: start: 20110623, end: 20110630
  16. PREDNISOLONE [Concomitant]
     Dosage: 30 MG, UNKNOWN/D
     Route: 048
     Dates: start: 20110715, end: 20110803
  17. PREDNISOLONE [Concomitant]
     Dosage: 10 MG, UNKNOWN/D
     Route: 048
     Dates: start: 20111122, end: 20111219
  18. PREDNISOLONE [Concomitant]
     Dosage: 5 MG, QOD
     Route: 048
     Dates: start: 20120107, end: 20120120
  19. PREDNISOLONE [Concomitant]
     Dosage: 60 MG, UNKNOWN/D
     Route: 065
     Dates: start: 20110701, end: 20110705
  20. TACROLIMUS [Suspect]
     Dosage: 6 MG, UNKNOWN/D
     Route: 048
     Dates: start: 20110717, end: 20110719
  21. TACROLIMUS [Suspect]
     Dosage: 6 MG, BID
     Route: 048
     Dates: start: 20110801, end: 20110802
  22. PENTASA [Concomitant]
     Indication: COLITIS ULCERATIVE
     Dosage: 3000 MG, UNKNOWN/D
     Route: 048
     Dates: start: 20110224, end: 20110622
  23. PREDNISOLONE [Concomitant]
     Dosage: 30 MG, UNKNOWN/D
     Route: 048
     Dates: start: 20110526, end: 20110608
  24. PREDNISOLONE [Concomitant]
     Dosage: 40 MG, UNKNOWN/D
     Route: 065
     Dates: start: 20110711, end: 20110714
  25. TACROLIMUS [Suspect]
     Dosage: 9 MG, BID
     Route: 048
     Dates: start: 20110725, end: 20110725
  26. TACROLIMUS [Suspect]
     Dosage: 8 MG, BID
     Route: 048
     Dates: start: 20110729, end: 20110729
  27. TACROLIMUS [Suspect]
     Dosage: 9 MG, BID
     Route: 048
     Dates: start: 20110728, end: 20110728
  28. PREDNISOLONE [Concomitant]
     Dosage: 15 MG, UNKNOWN/D
     Route: 048
     Dates: start: 20111101, end: 20111121
  29. TACROLIMUS [Suspect]
     Dosage: 5 MG, BID
     Route: 048
     Dates: start: 20110716, end: 20110717
  30. TACROLIMUS [Suspect]
     Dosage: 10 MG, BID
     Route: 048
     Dates: start: 20110726, end: 20110727
  31. WARFARIN POTASSIUM [Concomitant]
     Indication: DEEP VEIN THROMBOSIS
     Dosage: 3 MG, UNKNOWN/D
     Route: 048
     Dates: start: 20100407, end: 20110630

REACTIONS (2)
  - RENAL DISORDER [None]
  - HYPERKALAEMIA [None]
